FAERS Safety Report 6910029-7 (Version None)
Quarter: 2010Q3

REPORT INFORMATION
  Report Type: 
  Country: None (occurrence: None)
  Receive Date: 20100806
  Receipt Date: 20100802
  Transmission Date: 20110219
  Serious: Yes (Other)
  Sender: FDA-Public Use
  Company Number: US-ASTRAZENECA-2007UW05667

PATIENT
  Age: 493 Month
  Sex: Female
  Weight: 98.9 kg

DRUGS (47)
  1. SEROQUEL [Suspect]
     Indication: SLEEP DISORDER
     Route: 048
     Dates: start: 19970301, end: 19990901
  2. SEROQUEL [Suspect]
     Indication: POST-TRAUMATIC STRESS DISORDER
     Route: 048
     Dates: start: 19970301, end: 19990901
  3. SEROQUEL [Suspect]
     Dosage: 25-700 MG
     Route: 048
     Dates: start: 19981029, end: 20020122
  4. SEROQUEL [Suspect]
     Dosage: 25-700 MG
     Route: 048
     Dates: start: 19981029, end: 20020122
  5. SEROQUEL [Suspect]
     Dosage: 25-200 MG
     Route: 048
     Dates: start: 20001001, end: 20060501
  6. SEROQUEL [Suspect]
     Dosage: 25-200 MG
     Route: 048
     Dates: start: 20001001, end: 20060501
  7. CLOZARIL [Concomitant]
  8. GEODON [Concomitant]
  9. NAVANE [Concomitant]
  10. SOLIAN [Concomitant]
  11. STELAZINE [Concomitant]
  12. THORAZINE [Concomitant]
  13. TRILAFON [Concomitant]
  14. HALIPERIDOL [Concomitant]
  15. ALDACTONE [Concomitant]
  16. ALTACE [Concomitant]
  17. COREG [Concomitant]
  18. DIFLUCAN [Concomitant]
  19. ELAVIL [Concomitant]
  20. GLUCOPHAGE [Concomitant]
  21. LOVENOX [Concomitant]
  22. NEXIUM [Concomitant]
  23. PLAQUENIL [Concomitant]
  24. ACETAMINOPHEN [Concomitant]
  25. VALIUM [Concomitant]
  26. ZOCOR [Concomitant]
  27. ZYPREXA [Concomitant]
     Indication: POST-TRAUMATIC STRESS DISORDER
     Dates: start: 20001020
  28. GLIPIZIDE [Concomitant]
  29. SPIRONOLACTONE [Concomitant]
  30. GLYBURIDE [Concomitant]
  31. MORPHINE SULFATE [Concomitant]
  32. ALBUTEROL SULFATE [Concomitant]
  33. WARFARIN SODIUM [Concomitant]
  34. METRONIDAZOLE [Concomitant]
  35. ISOSORBIDE DINITRATE [Concomitant]
  36. HYDRALAZINE HYDROCHLORIDE [Concomitant]
  37. NYSTATIN [Concomitant]
  38. NITROGLYCERIN [Concomitant]
  39. HYDROCODONE BITARTRATE [Concomitant]
  40. ABILIFY [Concomitant]
     Dates: start: 20030401
  41. WELLBUTRIN [Concomitant]
  42. AZITHROMYCIN [Concomitant]
  43. VANCOMYCIN [Concomitant]
  44. HALDOL [Concomitant]
     Dates: start: 19960101
  45. HYDRALAZINE HCL [Concomitant]
  46. PLAVIX [Concomitant]
  47. TOPROL-XL [Concomitant]

REACTIONS (6)
  - BLOOD CHOLESTEROL INCREASED [None]
  - CARDIAC DISORDER [None]
  - HYPERLIPIDAEMIA [None]
  - MYOCARDIAL INFARCTION [None]
  - RENAL FAILURE [None]
  - TYPE 2 DIABETES MELLITUS [None]
